FAERS Safety Report 20311224 (Version 1)
Quarter: 2022Q1

REPORT INFORMATION
  Report Type: Spontaneous
  Country: CA (occurrence: CA)
  Receive Date: 20220107
  Receipt Date: 20220107
  Transmission Date: 20220423
  Serious: Yes (Other)
  Sender: FDA-Public Use
  Company Number: CA-TEVA-2021-CA-1995840

PATIENT
  Age: 43 Year
  Sex: Female

DRUGS (4)
  1. METHOTREXATE [Suspect]
     Active Substance: METHOTREXATE
     Indication: Rheumatoid arthritis
     Route: 058
  2. CELEBREX [Concomitant]
     Active Substance: CELECOXIB
     Indication: Adenomatous polyposis coli
     Dosage: 200 MILLIGRAM DAILY;
     Route: 048
  3. HYDROXYCHLOROQUINE [Concomitant]
     Active Substance: HYDROXYCHLOROQUINE
  4. RUXIENCE [RITUXIMABPVVR] [Concomitant]
     Indication: Rheumatoid arthritis
     Route: 042

REACTIONS (3)
  - Pain [Unknown]
  - Incorrect route of product administration [Unknown]
  - Off label use [Unknown]
